FAERS Safety Report 9029101 (Version 1)
Quarter: 2013Q1

REPORT INFORMATION
  Report Type: Spontaneous
  Country: GB (occurrence: GB)
  Receive Date: 20130122
  Receipt Date: 20130122
  Transmission Date: 20140127
  Serious: Yes (Other)
  Sender: FDA-Public Use
  Company Number: GB-ROCHE-1180468

PATIENT
  Sex: Male

DRUGS (3)
  1. XELODA [Suspect]
     Indication: COLON CANCER
     Dosage: 14 DAYS ON 7 DAYS OFF
     Route: 065
     Dates: start: 20121203
  2. XELODA [Suspect]
     Dosage: 14 DAYS ON 7 DAYS OFF
     Route: 065
     Dates: start: 20121224
  3. XELODA [Suspect]
     Route: 065

REACTIONS (1)
  - Retinal detachment [Unknown]
